FAERS Safety Report 6069527-3 (Version None)
Quarter: 2009Q1

REPORT INFORMATION
  Report Type: 
  Country: None (occurrence: None)
  Receive Date: 20090206
  Receipt Date: 20090202
  Transmission Date: 20090719
  Serious: No
  Sender: FDA-Public Use
  Company Number: US-B.I. PHARMACEUTICALS,INC./RIDGEFIELD-2009-BP-01344BP

PATIENT
  Sex: Female

DRUGS (17)
  1. SPIRIVA [Suspect]
     Indication: CHRONIC OBSTRUCTIVE PULMONARY DISEASE
     Dosage: 18MCG
     Route: 055
     Dates: start: 20080901
  2. DILANTIN [Suspect]
     Indication: CONVULSION
     Route: 048
  3. ALBUTEROL [Concomitant]
     Indication: CHRONIC OBSTRUCTIVE PULMONARY DISEASE
     Route: 055
  4. TRAZODONE HCL [Concomitant]
     Indication: DEPRESSION
     Route: 048
  5. TRAZODONE HCL [Concomitant]
     Indication: SLEEP DISORDER THERAPY
  6. VASOTEC [Concomitant]
     Indication: HYPERTENSION
     Route: 048
  7. KLONOPIN [Concomitant]
     Indication: ANXIETY
     Route: 048
  8. KLONOPIN [Concomitant]
     Indication: SLEEP DISORDER THERAPY
  9. SOMA [Concomitant]
     Indication: NECK PAIN
     Route: 048
  10. SOMA [Concomitant]
     Indication: RELAXATION THERAPY
  11. NEURONTIN [Concomitant]
     Indication: NECK PAIN
     Route: 048
  12. NARCO [Concomitant]
     Indication: NECK PAIN
     Route: 048
  13. PREVACID [Concomitant]
     Indication: GASTROOESOPHAGEAL REFLUX DISEASE
     Route: 048
  14. EFFEXOR [Concomitant]
     Indication: ANXIETY
     Route: 048
  15. EFFEXOR [Concomitant]
     Indication: DEPRESSION
  16. LEVOTHROID [Concomitant]
     Indication: HYPOTHYROIDISM
     Route: 048
  17. LIPITOR [Concomitant]
     Indication: BLOOD CHOLESTEROL INCREASED
     Route: 048

REACTIONS (4)
  - DRY MOUTH [None]
  - GINGIVAL SWELLING [None]
  - LIP DRY [None]
  - ORAL DISCOMFORT [None]
